FAERS Safety Report 6759994-1 (Version None)
Quarter: 2010Q2

REPORT INFORMATION
  Report Type: 
  Country: None (occurrence: None)
  Receive Date: 20100608
  Receipt Date: 20100527
  Transmission Date: 20101027
  Serious: Yes (Other)
  Sender: FDA-Public Use
  Company Number: US-SANOFI-AVENTIS-2010SA030732

PATIENT
  Age: 81 Year
  Sex: Female

DRUGS (13)
  1. MULTAQ [Suspect]
     Indication: ATRIAL FIBRILLATION
     Route: 048
     Dates: start: 20100401, end: 20100527
  2. DILTIAZEM [Suspect]
     Indication: HEART RATE ABNORMAL
     Route: 048
     Dates: start: 20100401, end: 20100527
  3. BUMEX [Concomitant]
  4. SPIRONOLACTONE [Concomitant]
  5. WARFARIN SODIUM [Concomitant]
  6. PRIMIDONE [Concomitant]
     Indication: TREMOR
  7. LIPITOR [Concomitant]
  8. ALLEGRA [Concomitant]
  9. CALCIUM CITRATE [Concomitant]
  10. CALCITONIN [Concomitant]
     Indication: OSTEOPOROSIS
  11. VITAMIN D [Concomitant]
  12. NEXIUM /UNK/ [Concomitant]
  13. NEXIUM /UNK/ [Concomitant]

REACTIONS (4)
  - ALANINE AMINOTRANSFERASE INCREASED [None]
  - ASPARTATE AMINOTRANSFERASE INCREASED [None]
  - BLOOD ALKALINE PHOSPHATASE INCREASED [None]
  - JAUNDICE CHOLESTATIC [None]
